FAERS Safety Report 4434226-8 (Version None)
Quarter: 2004Q3

REPORT INFORMATION
  Report Type: 
  Country: None (occurrence: None)
  Receive Date: 20040825
  Receipt Date: 20040806
  Transmission Date: 20050211
  Serious: Yes (Other)
  Sender: FDA-Public Use
  Company Number: DE_040814081

PATIENT
  Age: 65 Year
  Sex: Male

DRUGS (2)
  1. GEMZAR [Suspect]
     Dosage: 1000 MG/M2
     Dates: start: 20030101
  2. CAPECITABINE [Concomitant]

REACTIONS (6)
  - CORNEAL OPACITY [None]
  - DIABETES MELLITUS NON-INSULIN-DEPENDENT [None]
  - GLYCOSYLATED HAEMOGLOBIN INCREASED [None]
  - NEOPLASM PROGRESSION [None]
  - PARANEOPLASTIC SYNDROME [None]
  - VISUAL ACUITY REDUCED [None]
